FAERS Safety Report 19715804 (Version 1)
Quarter: 2021Q3

REPORT INFORMATION
  Report Type: Report from Study
  Country: US (occurrence: US)
  Receive Date: 20210818
  Receipt Date: 20210818
  Transmission Date: 20211014
  Serious: Yes (Hospitalization)
  Sender: FDA-Public Use
  Company Number: US-BAYER-2021-184763

PATIENT
  Age: 78 Year
  Sex: Female

DRUGS (3)
  1. XELODA [Concomitant]
     Active Substance: CAPECITABINE
  2. LONSURF [Concomitant]
     Active Substance: TIPIRACIL HYDROCHLORIDE\TRIFLURIDINE
  3. STIVARGA [Suspect]
     Active Substance: REGORAFENIB
     Indication: COLON CANCER METASTATIC
     Dosage: 80 MG, QD
     Route: 048
     Dates: start: 20210727, end: 20210802

REACTIONS (4)
  - Nausea [Recovering/Resolving]
  - Vomiting [Recovering/Resolving]
  - Malaise [None]
  - Off label use [Unknown]

NARRATIVE: CASE EVENT DATE: 20210727
